FAERS Safety Report 10756597 (Version 3)
Quarter: 2015Q3

REPORT INFORMATION
  Report Type: Spontaneous
  Country: US (occurrence: US)
  Receive Date: 20150202
  Receipt Date: 20150702
  Transmission Date: 20151125
  Serious: Yes (Death, Other)
  Sender: FDA-Public Use
  Company Number: US-GLAXOSMITHKLINE-US2015GSK012457

PATIENT
  Age: 66 Year
  Sex: Male

DRUGS (28)
  1. IPRATROPIUM BROMIDE/ALBUTEROL SULFATE [Concomitant]
     Active Substance: ALBUTEROL SULFATE\IPRATROPIUM BROMIDE
  2. SPIRIVA [Concomitant]
     Active Substance: TIOTROPIUM BROMIDE MONOHYDRATE
  3. VITAMIN B COMPLEX [Concomitant]
     Active Substance: CYANOCOBALAMIN\DEXPANTHENOL\NIACINAMIDE\PYRIDOXINE HYDROCHLORIDE\RIBOFLAVIN 5^-PHOSPHATE SODIUM\THIAMINE HYDROCHLORIDE\VITAMIN B COMPLEX
  4. VITAMIN D [Concomitant]
     Active Substance: CHOLECALCIFEROL
  5. BENADRYL [Concomitant]
     Active Substance: DIPHENHYDRAMINE HYDROCHLORIDE
  6. FLONASE [Concomitant]
     Active Substance: FLUTICASONE PROPIONATE
  7. ZINC [Concomitant]
     Active Substance: ZINC\ZINC CHLORIDE
  8. PLAVIX [Concomitant]
     Active Substance: CLOPIDOGREL BISULFATE
  9. LANTUS [Concomitant]
     Active Substance: INSULIN GLARGINE
  10. AFRIN [Concomitant]
     Active Substance: OXYMETAZOLINE
  11. RANITIDINE HYDROCHLORIDE. [Concomitant]
     Active Substance: RANITIDINE HYDROCHLORIDE
  12. COQ10 [Concomitant]
     Active Substance: UBIDECARENONE
  13. MUCINEX [Concomitant]
     Active Substance: GUAIFENESIN
  14. CARVEDILOL. [Concomitant]
     Active Substance: CARVEDILOL
  15. FUROSEMIDE. [Concomitant]
     Active Substance: FUROSEMIDE
  16. GLUCOPHAGE XR [Concomitant]
     Active Substance: METFORMIN HYDROCHLORIDE
  17. PANTOPRAZOLE [Concomitant]
     Active Substance: PANTOPRAZOLE SODIUM
  18. FOLIC ACID. [Concomitant]
     Active Substance: FOLIC ACID
  19. MAGNESIUM [Concomitant]
     Active Substance: MAGNESIUM
  20. LIPITOR [Concomitant]
     Active Substance: ATORVASTATIN CALCIUM
  21. ASPIRIN (BABY) [Concomitant]
     Active Substance: ASPIRIN
  22. DIOVAN [Concomitant]
     Active Substance: VALSARTAN
  23. POTASSIUM [Concomitant]
     Active Substance: POTASSIUM
  24. CALCIUM [Concomitant]
     Active Substance: CALCIUM
  25. GLIPIZIDE. [Concomitant]
     Active Substance: GLIPIZIDE
  26. VICTOZA [Concomitant]
     Active Substance: LIRAGLUTIDE
  27. BREO ELLIPTA [Suspect]
     Active Substance: FLUTICASONE FUROATE\VILANTEROL TRIFENATATE
     Indication: CHRONIC OBSTRUCTIVE PULMONARY DISEASE
     Dosage: UNK, U
  28. NITROQUICK [Concomitant]
     Active Substance: NITROGLYCERIN

REACTIONS (6)
  - Dyspnoea [Unknown]
  - Dizziness [Unknown]
  - Sudden death [Fatal]
  - Cardiac disorder [Unknown]
  - Nausea [Unknown]
  - Asthenia [Unknown]

NARRATIVE: CASE EVENT DATE: 20141229
